FAERS Safety Report 22104009 (Version 2)
Quarter: 2023Q1

REPORT INFORMATION
  Report Type: Report from Study
  Country: CN (occurrence: None)
  Receive Date: 20230316
  Receipt Date: 20230324
  Transmission Date: 20230417
  Serious: Yes (Hospitalization)
  Sender: FDA-Public Use
  Company Number: CN-ROCHE-3199246

PATIENT
  Age: 67 Year
  Sex: Male
  Weight: 71 kg

DRUGS (20)
  1. TIRAGOLUMAB [Suspect]
     Active Substance: TIRAGOLUMAB
     Indication: Squamous cell carcinoma of lung
     Dosage: START DATE OF MOST RECENT DOSE OF STUDY DRUG PRIOR TO AE 27/SEP/2022 (840 MG), START DATE OF MOST RE
     Route: 042
     Dates: start: 20211231
  2. ATEZOLIZUMAB [Suspect]
     Active Substance: ATEZOLIZUMAB
     Indication: Squamous cell carcinoma of lung
     Dosage: START DATE OF MOST RECENT DOSE OF STUDY DRUG PRIOR TO AE 27/SEP/2022 (1680 MG), START DATE OF MOST R
     Route: 042
     Dates: start: 20211231
  3. LEVOTHYROXINE SODIUM [Concomitant]
     Active Substance: LEVOTHYROXINE SODIUM
     Route: 048
     Dates: start: 20220803
  4. LEVOFLOXACIN HYDROCHLORIDE [Concomitant]
     Active Substance: LEVOFLOXACIN HYDROCHLORIDE
     Dosage: 6 UNKNOWN
     Route: 047
     Dates: start: 20220920, end: 20220923
  5. DICLOFENAC SODIUM [Concomitant]
     Active Substance: DICLOFENAC SODIUM
     Route: 048
     Dates: start: 20220919, end: 20220922
  6. VITAMIN C [Concomitant]
     Active Substance: ASCORBIC ACID
     Route: 042
     Dates: start: 20230216, end: 20230216
  7. VITAMIN C [Concomitant]
     Active Substance: ASCORBIC ACID
     Route: 042
     Dates: start: 20230217, end: 20230217
  8. VITAMIN B6 [Concomitant]
     Active Substance: PYRIDOXINE HYDROCHLORIDE
     Route: 042
     Dates: start: 20230216, end: 20230216
  9. VITAMIN B6 [Concomitant]
     Active Substance: PYRIDOXINE HYDROCHLORIDE
     Route: 042
     Dates: start: 20230217, end: 20230217
  10. SODIUM CHLORIDE [Concomitant]
     Active Substance: SODIUM CHLORIDE
     Route: 042
     Dates: start: 20230216, end: 20230221
  11. METHYLPREDNISOLONE SODIUM SUCCINATE [Concomitant]
     Active Substance: METHYLPREDNISOLONE SODIUM SUCCINATE
     Route: 042
  12. METHYLPREDNISOLONE SODIUM SUCCINATE [Concomitant]
     Active Substance: METHYLPREDNISOLONE SODIUM SUCCINATE
     Route: 042
     Dates: start: 20230221, end: 20230225
  13. CEFUROXIME SODIUM [Concomitant]
     Active Substance: CEFUROXIME SODIUM
     Route: 042
     Dates: start: 20230216, end: 20230225
  14. ACETYLCYSTEINE [Concomitant]
     Active Substance: ACETYLCYSTEINE
     Route: 042
     Dates: start: 20230216, end: 20230219
  15. OMEPRAZOLE SODIUM [Concomitant]
     Active Substance: OMEPRAZOLE SODIUM
     Route: 042
     Dates: start: 20230216, end: 20230225
  16. COMPOUND AMINO ACID (18AA-I) [Concomitant]
     Route: 042
     Dates: start: 20230216, end: 20230225
  17. ONDANSETRON HYDROCHLORIDE [Concomitant]
     Active Substance: ONDANSETRON HYDROCHLORIDE
     Route: 042
     Dates: start: 20230216, end: 20230220
  18. CHYMOTRYPSIN [Concomitant]
     Active Substance: CHYMOTRYPSIN
     Route: 042
     Dates: start: 20230219, end: 20230222
  19. DICLOFENAC SODIUM AND CODEINE PHOSPHATE [Concomitant]
     Route: 048
     Dates: start: 20230222
  20. PREDNISONE ACETATE [Concomitant]
     Active Substance: PREDNISONE ACETATE
     Route: 048
     Dates: start: 20230225

REACTIONS (2)
  - COVID-19 [Not Recovered/Not Resolved]
  - Pneumonitis [Not Recovered/Not Resolved]

NARRATIVE: CASE EVENT DATE: 20221008
